FAERS Safety Report 13096967 (Version 1)
Quarter: 2017Q1

REPORT INFORMATION
  Report Type: Spontaneous
  Country: US (occurrence: US)
  Receive Date: 20170106
  Receipt Date: 20170106
  Transmission Date: 20170428
  Serious: No
  Sender: FDA-Public Use
  Company Number: None

PATIENT
  Age: 60 Year
  Sex: Female
  Weight: 78.75 kg

DRUGS (4)
  1. LEVOFLOXACIN. [Suspect]
     Active Substance: LEVOFLOXACIN
     Indication: SINUSITIS
     Dosage: QUANTITY:7 CAPSULE(S); DAILY; ORAL?
     Route: 048
     Dates: start: 20161207, end: 20161213
  2. MULTIVITAMIN [Concomitant]
     Active Substance: VITAMINS
  3. FIBER [Concomitant]
     Active Substance: PSYLLIUM HUSK
  4. CLOPIDOGREL [Concomitant]
     Active Substance: CLOPIDOGREL BISULFATE

REACTIONS (4)
  - Tendonitis [None]
  - Pain in extremity [None]
  - Musculoskeletal pain [None]
  - Movement disorder [None]

NARRATIVE: CASE EVENT DATE: 20161209
